FAERS Safety Report 20065542 (Version 2)
Quarter: 2021Q4

REPORT INFORMATION
  Report Type: Spontaneous
  Country: BE (occurrence: BE)
  Receive Date: 20211113
  Receipt Date: 20211201
  Transmission Date: 20220303
  Serious: Yes (Other)
  Sender: FDA-Public Use
  Company Number: BE-NOVARTISPH-NVSC2021BE257806

PATIENT
  Age: 39 Year
  Sex: Female

DRUGS (1)
  1. TEGRETOL [Suspect]
     Active Substance: CARBAMAZEPINE
     Indication: Paraesthesia
     Dosage: 2 DF, QD / 1/4 TH TABLET 200 MG/ 100 MG QD
     Route: 065
     Dates: start: 2020

REACTIONS (3)
  - Suicidal ideation [Recovering/Resolving]
  - Depressed mood [Unknown]
  - Fatigue [Unknown]

NARRATIVE: CASE EVENT DATE: 20200101
